FAERS Safety Report 16911001 (Version 1)
Quarter: 2019Q4

REPORT INFORMATION
  Report Type: Spontaneous
  Country: SE (occurrence: SE)
  Receive Date: 20191012
  Receipt Date: 20191012
  Transmission Date: 20200122
  Serious: Yes (Other)
  Sender: FDA-Public Use
  Company Number: SE-ACCORD-157515

PATIENT
  Age: 63 Year
  Sex: Female

DRUGS (6)
  1. NALTREXONE/NALTREXONE HYDROCHLORIDE [Suspect]
     Active Substance: NALTREXONE
     Indication: PRODUCT USED FOR UNKNOWN INDICATION
     Dosage: 1/2 TABLET
     Route: 048
     Dates: start: 20190827, end: 20190829
  2. OXASCAND [Concomitant]
     Active Substance: OXAZEPAM
  3. IMOVANE [Concomitant]
     Active Substance: ZOPICLONE
  4. PROVERA [Concomitant]
     Active Substance: MEDROXYPROGESTERONE ACETATE
  5. ESTRADOT [Concomitant]
     Active Substance: ESTRADIOL
  6. CYMBALTA [Concomitant]
     Active Substance: DULOXETINE HYDROCHLORIDE

REACTIONS (3)
  - Dizziness [Recovered/Resolved]
  - Derealisation [Recovered/Resolved]
  - Nausea [Recovered/Resolved]

NARRATIVE: CASE EVENT DATE: 20190827
